FAERS Safety Report 25411371 (Version 1)
Quarter: 2025Q2

REPORT INFORMATION
  Report Type: Spontaneous
  Country: SK (occurrence: SK)
  Receive Date: 20250609
  Receipt Date: 20250609
  Transmission Date: 20250716
  Serious: Yes (Hospitalization)
  Sender: ROCHE
  Company Number: None

PATIENT
  Age: 60 Year
  Sex: Female
  Weight: 77 kg

DRUGS (11)
  1. RITUXIMAB [Suspect]
     Active Substance: RITUXIMAB
     Indication: Thrombotic thrombocytopenic purpura
     Dosage: 700 MG, QW (TOTAL ADMINISTERED A TOTAL OF 4 TIMES)
     Route: 042
     Dates: start: 202212
  2. RITUXIMAB [Suspect]
     Active Substance: RITUXIMAB
     Indication: ADAMTS13 activity decreased
  3. CABLIVI [Suspect]
     Active Substance: CAPLACIZUMAB-YHDP
     Indication: Thrombotic thrombocytopenic purpura
     Route: 042
     Dates: start: 20221210, end: 20221221
  4. SILYMARINE [Concomitant]
  5. PANCREATIN [Concomitant]
     Active Substance: PANCRELIPASE
  6. LEVOCETIRIZINE [Concomitant]
     Active Substance: LEVOCETIRIZINE
  7. POTASSIUM ASPARTATE [Concomitant]
     Active Substance: POTASSIUM ASPARTATE
  8. MAGNESIUM ASPARTATE [Concomitant]
     Active Substance: MAGNESIUM ASPARTATE
  9. BISOPROLOL [Concomitant]
     Active Substance: BISOPROLOL
  10. ACETAMINOPHEN [Concomitant]
     Active Substance: ACETAMINOPHEN
  11. METHYLPREDNISOLONE [Concomitant]
     Active Substance: METHYLPREDNISOLONE
     Indication: Thrombotic thrombocytopenic purpura
     Dosage: 1 G, QD WITH GRADUAL DETRACTION FROM DAY 6
     Dates: start: 20221208, end: 20230202

REACTIONS (14)
  - ADAMTS13 activity decreased [Recovered/Resolved]
  - Skin haemorrhage [Not Recovered/Not Resolved]
  - Epistaxis [Not Recovered/Not Resolved]
  - Haematoma [Unknown]
  - Pallor [Unknown]
  - Abdominal tenderness [Unknown]
  - Pollakiuria [Unknown]
  - Bradyphrenia [Unknown]
  - Chills [Unknown]
  - Contusion [Unknown]
  - Petechiae [Unknown]
  - Fatigue [Unknown]
  - Asthenia [Unknown]
  - Body temperature increased [Unknown]

NARRATIVE: CASE EVENT DATE: 20221221
